FAERS Safety Report 13067382 (Version 1)
Quarter: 2016Q4

REPORT INFORMATION
  Report Type: Other
  Country: IN (occurrence: IN)
  Receive Date: 20161228
  Receipt Date: 20161228
  Transmission Date: 20170207
  Serious: Yes (Congenital Anomaly, Other)
  Sender: FDA-Public Use
  Company Number: IN-NOVEL LABORATORIES, INC-2016-05697

PATIENT
  Sex: Male

DRUGS (1)
  1. MISOPROSTOL. [Suspect]
     Active Substance: MISOPROSTOL
     Indication: ABORTION INDUCED
     Route: 048

REACTIONS (3)
  - Limb reduction defect [Unknown]
  - Ectopic kidney [Unknown]
  - Proximal focal femoral deficiency [Unknown]
